FAERS Safety Report 6086606-5 (Version None)
Quarter: 2009Q1

REPORT INFORMATION
  Report Type: 
  Country: None (occurrence: None)
  Receive Date: 20090223
  Receipt Date: 20090210
  Transmission Date: 20090719
  Serious: Yes (Hospitalization, Other)
  Sender: FDA-Public Use
  Company Number: US-PFIZER INC-2009171405

PATIENT
  Sex: Male

DRUGS (4)
  1. CHANTIX [Suspect]
     Indication: SMOKING CESSATION THERAPY
     Dosage: UNK
     Dates: start: 20090101
  2. METHADONE HYDROCHLORIDE [Suspect]
     Dates: start: 20090101
  3. OXYCODONE [Concomitant]
  4. MOTRIN [Concomitant]

REACTIONS (5)
  - BACK PAIN [None]
  - NAUSEA [None]
  - RHABDOMYOLYSIS [None]
  - UNEVALUABLE EVENT [None]
  - VOMITING [None]
